FAERS Safety Report 23391640 (Version 2)
Quarter: 2024Q2

REPORT INFORMATION
  Report Type: Spontaneous
  Country: US (occurrence: US)
  Receive Date: 20240111
  Receipt Date: 20240618
  Transmission Date: 20240716
  Serious: No
  Sender: FDA-Public Use
  Company Number: US-BIOGEN-2023BI01191851

PATIENT
  Sex: Male

DRUGS (10)
  1. VUMERITY [Suspect]
     Active Substance: DIROXIMEL FUMARATE
     Indication: Multiple sclerosis
     Dosage: TAKE 1 CAPSULE (231MG) BY MOUTH TWICE DAILY FOR THE FIRST 7 DAYS,
     Route: 050
     Dates: start: 20230218
  2. VUMERITY [Suspect]
     Active Substance: DIROXIMEL FUMARATE
     Dosage: 2 CAPSULES (462MG) TWICE DAILY THEREAFTER
     Route: 050
  3. SENNOSIDES [Concomitant]
     Active Substance: SENNOSIDES
     Route: 050
  4. AMLODIPINE BESYLATE [Concomitant]
     Active Substance: AMLODIPINE BESYLATE
     Route: 050
  5. OMEPRAZOLE [Concomitant]
     Active Substance: DONEPEZIL HYDROCHLORIDE\OMEPRAZOLE\OMEPRAZOLE MAGNESIUM
     Route: 050
  6. FINASTERIDE [Concomitant]
     Active Substance: FINASTERIDE
     Route: 050
  7. CITALOPRAM HYDROBROMIDE [Concomitant]
     Active Substance: CITALOPRAM HYDROBROMIDE
     Route: 050
  8. TELMISARTAN [Concomitant]
     Active Substance: TELMISARTAN
     Route: 050
  9. AMITRIPTYLINE HYDROCHLORIDE [Concomitant]
     Active Substance: AMITRIPTYLINE HYDROCHLORIDE
     Route: 050
  10. D3 MAXIMUM STRENGTH [Concomitant]
     Route: 050

REACTIONS (10)
  - Product dose omission issue [Unknown]
  - Contusion [Unknown]
  - Multiple sclerosis relapse [Unknown]
  - Hypoaesthesia [Unknown]
  - Paraesthesia [Unknown]
  - Constipation [Unknown]
  - Dysstasia [Unknown]
  - Burning sensation [Unknown]
  - Pruritus [Unknown]
  - Flushing [Unknown]
